FAERS Safety Report 11875603 (Version 1)
Quarter: 2015Q4

REPORT INFORMATION
  Report Type: Spontaneous
  Country: FR (occurrence: FR)
  Receive Date: 20151229
  Receipt Date: 20151229
  Transmission Date: 20160305
  Serious: Yes (Other)
  Sender: FDA-Public Use
  Company Number: FR-TEVA-620286ISR

PATIENT
  Age: 15 Year
  Sex: Male

DRUGS (8)
  1. LOVENOX [Suspect]
     Active Substance: ENOXAPARIN SODIUM
     Dosage: .4 ML DAILY;
     Route: 065
     Dates: start: 20151026
  2. METHOTREXATE MYLAN 100 MG/ML [Suspect]
     Active Substance: METHOTREXATE
     Indication: OSTEOSARCOMA
     Route: 041
     Dates: start: 20150910, end: 20151027
  3. ETOPOSIDE MYLAN 20 MG/ML [Suspect]
     Active Substance: ETOPOSIDE
     Indication: OSTEOSARCOMA
     Dosage: 75 MG/M2 DAILY; EXACT FORM: SOLUTION TO BE DILUTED FOR INFUSION. SARCOME 09-OS 2006 PROTOCOL
     Route: 041
     Dates: start: 20151001, end: 20151004
  4. ACIDE FOLINIQUE TEVA [Suspect]
     Active Substance: LEUCOVORIN
     Dosage: 72 MILLIGRAM DAILY;
     Route: 065
     Dates: start: 20151028
  5. DEXAMETHASONE MYLAN 20 MG/5 ML [Suspect]
     Active Substance: DEXAMETHASONE
     Indication: NAUSEA
     Route: 040
     Dates: start: 20151027, end: 20151027
  6. PLITICAN [Suspect]
     Active Substance: ALIZAPRIDE HYDROCHLORIDE
     Dosage: 100 MILLIGRAM DAILY;
     Route: 042
     Dates: start: 20151027, end: 20151027
  7. ZOPHREN 2 MG/ML [Suspect]
     Active Substance: ONDANSETRON
     Dosage: 16 MILLIGRAM DAILY;
     Route: 041
     Dates: start: 20151027
  8. IFOSFAMIDE EG 40 MG/ML [Suspect]
     Active Substance: IFOSFAMIDE
     Dosage: 3000 MG/M2 DAILY; SARCOME 09-OS 2006 PROTOCOL
     Route: 065
     Dates: start: 20151001, end: 20151004

REACTIONS (3)
  - Persecutory delusion [Recovered/Resolved]
  - Confusional state [Recovered/Resolved]
  - Encephalopathy [Recovering/Resolving]

NARRATIVE: CASE EVENT DATE: 20151027
